FAERS Safety Report 14609925 (Version 1)
Quarter: 2018Q1

REPORT INFORMATION
  Report Type: Spontaneous
  Country: US (occurrence: US)
  Receive Date: 20180307
  Receipt Date: 20180307
  Transmission Date: 20180509
  Serious: No
  Sender: FDA-Public Use
  Company Number: None

PATIENT
  Sex: Male
  Weight: 81 kg

DRUGS (5)
  1. VALSARTAN. [Concomitant]
     Active Substance: VALSARTAN
  2. AMLODIPINE [Suspect]
     Active Substance: AMLODIPINE BESYLATE
     Indication: HYPERTENSION
     Dosage: ?          QUANTITY:1 TABLET(S);?
     Route: 048
  3. FINASTERIDE. [Concomitant]
     Active Substance: FINASTERIDE
  4. ASPIRIN. [Concomitant]
     Active Substance: ASPIRIN
  5. ALFUZOSIN ER [Concomitant]

REACTIONS (5)
  - Muscle spasms [None]
  - Arthralgia [None]
  - Toothache [None]
  - Pain in extremity [None]
  - Peripheral swelling [None]
